FAERS Safety Report 23071078 (Version 1)
Quarter: 2023Q4

REPORT INFORMATION
  Report Type: Spontaneous
  Country: US (occurrence: US)
  Receive Date: 20231016
  Receipt Date: 20231016
  Transmission Date: 20240110
  Serious: Yes (Hospitalization, Other)
  Sender: FDA-Public Use
  Company Number: US-Pharma_Research_Software_Solution-USA-POI0580202300199

PATIENT
  Age: 65 Year
  Sex: Male

DRUGS (10)
  1. POTASSIUM CHLORIDE [Suspect]
     Active Substance: POTASSIUM CHLORIDE
     Indication: Product used for unknown indication
     Dosage: UNKNOWN
     Route: 065
     Dates: end: 202309
  2. TREPROSTINIL [Suspect]
     Active Substance: TREPROSTINIL
     Indication: Pulmonary arterial hypertension
     Dates: start: 202308
  3. TREPROSTINIL [Suspect]
     Active Substance: TREPROSTINIL
     Dates: start: 2023
  4. TREPROSTINIL [Suspect]
     Active Substance: TREPROSTINIL
     Dates: start: 2023
  5. TREPROSTINIL [Suspect]
     Active Substance: TREPROSTINIL
     Dosage: UNKNOWN
     Dates: start: 202308
  6. TYVASO [Suspect]
     Active Substance: TREPROSTINIL
     Indication: Pulmonary arterial hypertension
     Dosage: UNKNOWN
     Dates: start: 202308
  7. TYVASO [Suspect]
     Active Substance: TREPROSTINIL
     Dates: start: 202308, end: 202308
  8. TYVASO [Suspect]
     Active Substance: TREPROSTINIL
     Dates: start: 202308, end: 202308
  9. TORSEMIDE [Suspect]
     Active Substance: TORSEMIDE
     Indication: Product used for unknown indication
     Dosage: UNKNOWN
     Route: 065
     Dates: end: 202309
  10. SILDENAFIL [Concomitant]
     Active Substance: SILDENAFIL
     Indication: Product used for unknown indication
     Dosage: UNKNOWN
     Route: 065

REACTIONS (6)
  - Pneumonia [Unknown]
  - Ascites [Unknown]
  - Dyspnoea [Unknown]
  - Cough [Unknown]
  - Oxygen saturation decreased [Unknown]
  - Weight decreased [Unknown]

NARRATIVE: CASE EVENT DATE: 20230801
